FAERS Safety Report 8561205-1 (Version None)
Quarter: 2012Q3

REPORT INFORMATION
  Report Type: 
  Country: None (occurrence: None)
  Receive Date: 20120802
  Receipt Date: 20120725
  Transmission Date: 20120928
  Serious: Yes (Disabling)
  Sender: FDA-Public Use
  Company Number: JP-TEVA-330995ISR

PATIENT
  Sex: Female
  Weight: 60 kg

DRUGS (7)
  1. SERMION [Concomitant]
     Indication: ABULIA
  2. AMAZOLON [Concomitant]
     Indication: ABULIA
     Dosage: 1 GRAM;
     Route: 048
     Dates: end: 20120222
  3. CALBLOCK [Suspect]
     Indication: HYPERTENSION
     Dosage: 8 MILLIGRAM;
     Route: 048
     Dates: start: 20111109, end: 20120428
  4. MAGMITT TAB 330MG [Concomitant]
     Indication: CONSTIPATION
     Dosage: 990 MILLIGRAM;
     Route: 048
     Dates: start: 20111208, end: 20120428
  5. FUROSEMIDE [Suspect]
     Indication: HYPERTENSION
     Dosage: 20 MILLIGRAM;
     Route: 048
     Dates: start: 20110920, end: 20120428
  6. ASPARA K [Concomitant]
     Indication: HYPOKALAEMIA
     Dosage: 4 GRAM;
     Route: 048
     Dates: start: 20120120, end: 20120428
  7. CANDESARTAN CILEXETIL [Suspect]
     Indication: HYPERTENSION
     Dosage: 4 MILLIGRAM;
     Route: 048
     Dates: start: 20111115, end: 20120312

REACTIONS (3)
  - HYPERSENSITIVITY [None]
  - LIVER INJURY [None]
  - HEPATIC FUNCTION ABNORMAL [None]
